FAERS Safety Report 5690782-3 (Version None)
Quarter: 2008Q2

REPORT INFORMATION
  Report Type: 
  Country: None (occurrence: None)
  Receive Date: 20080401
  Receipt Date: 20080326
  Transmission Date: 20081010
  Serious: Yes (Hospitalization)
  Sender: FDA-Public Use
  Company Number: A0717610A

PATIENT
  Sex: Female

DRUGS (14)
  1. BUPROPION HYDROCHLORIDE [Suspect]
     Dosage: 300MG PER DAY
     Route: 048
     Dates: start: 20070101, end: 20071001
  2. WELLBUTRIN XL [Suspect]
     Dosage: 300MG PER DAY
     Route: 048
     Dates: start: 20071201
  3. ADVAIR HFA [Suspect]
     Indication: WHEEZING
     Dosage: 1PUFF PER DAY
     Route: 055
     Dates: start: 20070101
  4. CELEXA [Concomitant]
  5. LOTENSIN [Concomitant]
  6. LIPITOR [Concomitant]
  7. TRICOR [Concomitant]
  8. CLONAZEPAM [Concomitant]
  9. CHANTIX [Concomitant]
  10. SINGULAIR [Concomitant]
  11. ALBUTEROL [Concomitant]
  12. XANAX [Concomitant]
  13. COUMADIN [Concomitant]
  14. CENTRUM SILVER [Concomitant]

REACTIONS (8)
  - APHONIA [None]
  - BRONCHOSPASM [None]
  - CEREBROVASCULAR ACCIDENT [None]
  - DRUG INEFFECTIVE [None]
  - MUSCLE SPASMS [None]
  - NICOTINE DEPENDENCE [None]
  - THERAPEUTIC RESPONSE UNEXPECTED [None]
  - WHEEZING [None]
